FAERS Safety Report 6303884-5 (Version None)
Quarter: 2009Q3

REPORT INFORMATION
  Report Type: 
  Country: None (occurrence: None)
  Receive Date: 20090807
  Receipt Date: 20090807
  Transmission Date: 20100115
  Serious: Yes (Hospitalization)
  Sender: FDA-Public Use
  Company Number: None

PATIENT
  Age: 53 Year
  Sex: Male
  Weight: 112.94 kg

DRUGS (4)
  1. XOLAIR [Suspect]
     Indication: ASTHMA
     Dosage: 375 MG, EVERY 2 WEEKS, SC
     Route: 058
     Dates: start: 20060208
  2. XOLAIR [Suspect]
     Indication: ASTHMA
     Dosage: 375 MG, EVERY 2 WEEKS, SC
     Route: 058
     Dates: start: 20080618
  3. XOLAIR [Suspect]
     Indication: ASTHMA
     Dosage: 375 MG, EVERY 2 WEEKS, SC
     Route: 058
     Dates: start: 20090715
  4. XOLAIR [Suspect]

REACTIONS (1)
  - ATRIAL FIBRILLATION [None]
